FAERS Safety Report 18595627 (Version 1)
Quarter: 2020Q4

REPORT INFORMATION
  Report Type: Report from Study
  Country: DE (occurrence: DE)
  Receive Date: 20201209
  Receipt Date: 20201209
  Transmission Date: 20210114
  Serious: Yes (Hospitalization, Other)
  Sender: FDA-Public Use
  Company Number: DE-TAKEDA-2017BLT001374

PATIENT

DRUGS (19)
  1. HUMAN IMMUNOGLOBULIN; HYALURONIDASE [Suspect]
     Active Substance: HUMAN IMMUNOGLOBULIN G\HYALURONIDASE RECOMBINANT HUMAN
     Dosage: UNK UNK, ONE DOSE
     Route: 058
     Dates: start: 20160627, end: 20170206
  2. HUMAN IMMUNOGLOBULIN; HYALURONIDASE [Suspect]
     Active Substance: HUMAN IMMUNOGLOBULIN G\HYALURONIDASE RECOMBINANT HUMAN
     Dosage: 200 MILLILITER OF IG (UNKNOWN ML RHUPH20), ONE DOSE
     Route: 058
     Dates: start: 20160725, end: 20160725
  3. PREDNISOLON [Concomitant]
     Active Substance: PREDNISOLONE
     Indication: HAEMOPTYSIS
     Route: 048
  4. MUTAFLOR [Concomitant]
     Active Substance: ESCHERICHIA COLI
     Indication: DYSBIOSIS
  5. HUMAN IMMUNOGLOBULIN; HYALURONIDASE [Suspect]
     Active Substance: HUMAN IMMUNOGLOBULIN G\HYALURONIDASE RECOMBINANT HUMAN
     Dosage: UNK UNK, ONE DOSE
     Route: 058
     Dates: start: 20160627, end: 20170206
  6. HUMAN IMMUNOGLOBULIN; HYALURONIDASE [Suspect]
     Active Substance: HUMAN IMMUNOGLOBULIN G\HYALURONIDASE RECOMBINANT HUMAN
     Dosage: 200 ML (1 ML OF RHUPH20), ONE DOSE
     Route: 058
     Dates: start: 20170220, end: 20180620
  7. CEFEPIM [Concomitant]
     Active Substance: CEFEPIME HYDROCHLORIDE
     Indication: PNEUMONIA
  8. PANTOPRAZOL [Concomitant]
     Active Substance: PANTOPRAZOLE SODIUM
     Indication: GASTRIC DISORDER
  9. HUMAN IMMUNOGLOBULIN; HYALURONIDASE [Suspect]
     Active Substance: HUMAN IMMUNOGLOBULIN G\HYALURONIDASE RECOMBINANT HUMAN
     Indication: IMMUNODEFICIENCY COMMON VARIABLE
     Dosage: UNKNOWN ML IG, UNKNOWN ML RHUPH20
     Route: 058
     Dates: start: 20160627, end: 20170206
  10. DEKRISTOL [Concomitant]
     Active Substance: CHOLECALCIFEROL
     Indication: OSTEOPOROSIS PROPHYLAXIS
  11. HUMAN IMMUNOGLOBULIN; HYALURONIDASE [Suspect]
     Active Substance: HUMAN IMMUNOGLOBULIN G\HYALURONIDASE RECOMBINANT HUMAN
     Dosage: UNK UNK, ONE DOSE
     Route: 058
     Dates: start: 20160627, end: 20170206
  12. PREDNISOLON [Concomitant]
     Active Substance: PREDNISOLONE
     Indication: INTERSTITIAL LUNG DISEASE
  13. CLARITHROMYCIN. [Concomitant]
     Active Substance: CLARITHROMYCIN
     Indication: BRONCHITIS
  14. CEFPODOXIME [Concomitant]
     Active Substance: CEFPODOXIME
     Indication: HAEMOPTYSIS
  15. ROXITHROMYCIN [Concomitant]
     Active Substance: ROXITHROMYCIN
     Indication: PNEUMONIA
  16. CEFUROXIN [Concomitant]
     Active Substance: CEFUROXIME
     Indication: BRONCHITIS
  17. HUMAN IMMUNOGLOBULIN; HYALURONIDASE [Suspect]
     Active Substance: HUMAN IMMUNOGLOBULIN G\HYALURONIDASE RECOMBINANT HUMAN
     Dosage: 200 MILLILITER OF IG (UNKNOWN ML RHUPH20), 1X/2WKS
     Route: 058
     Dates: start: 20160627, end: 20160711
  18. DIPROSIS [Concomitant]
     Indication: ECZEMA
  19. DESOGESTREL [Concomitant]
     Active Substance: DESOGESTREL
     Indication: CONTRACEPTION

REACTIONS (2)
  - Interstitial lung disease [Recovered/Resolved with Sequelae]
  - Pulmonary vein occlusion [Recovered/Resolved with Sequelae]

NARRATIVE: CASE EVENT DATE: 201608
